FAERS Safety Report 5745813-9 (Version None)
Quarter: 2008Q2

REPORT INFORMATION
  Report Type: 
  Country: None (occurrence: None)
  Receive Date: 20080520
  Receipt Date: 20080505
  Transmission Date: 20081010
  Serious: Yes (Other)
  Sender: FDA-Public Use
  Company Number: GXKR2008GB04206

PATIENT
  Age: 44 Year
  Sex: Female

DRUGS (2)
  1. HALOPERIDOL [Suspect]
     Indication: BIPOLAR DISORDER
  2. OLANZAPINE [Suspect]
     Indication: BIPOLAR DISORDER

REACTIONS (5)
  - DELUSION [None]
  - FEELING ABNORMAL [None]
  - HYPERPROLACTINAEMIA [None]
  - PSYCHOTIC DISORDER [None]
  - SOMATOFORM DISORDER PREGNANCY [None]
